FAERS Safety Report 17520348 (Version 1)
Quarter: 2020Q1

REPORT INFORMATION
  Report Type: Spontaneous
  Country: LU (occurrence: LU)
  Receive Date: 20200309
  Receipt Date: 20200309
  Transmission Date: 20200409
  Serious: Yes (Death, Life-Threatening, Hospitalization)
  Sender: FDA-Public Use
  Company Number: LU-ALSI-202000068

PATIENT
  Age: 83 Year
  Sex: Male

DRUGS (2)
  1. EPINEPHRINE. [Concomitant]
     Active Substance: EPINEPHRINE
     Dates: start: 20200215, end: 20200215
  2. OXYGEN. [Suspect]
     Active Substance: OXYGEN
     Indication: CARDIO-RESPIRATORY ARREST
     Route: 055
     Dates: start: 20200215, end: 20200215

REACTIONS (4)
  - Product quality issue [Not Recovered/Not Resolved]
  - Nervous system disorder [Not Recovered/Not Resolved]
  - Product packaging quantity issue [Not Recovered/Not Resolved]
  - Accidental underdose [Not Recovered/Not Resolved]
